FAERS Safety Report 19939623 (Version 1)
Quarter: 2021Q4

REPORT INFORMATION
  Report Type: Spontaneous
  Country: FR (occurrence: FR)
  Receive Date: 20211011
  Receipt Date: 20211011
  Transmission Date: 20220304
  Serious: Yes (Other)
  Sender: FDA-Public Use
  Company Number: FR-PFM-2021-09797

PATIENT
  Age: 38 Year
  Sex: Female

DRUGS (1)
  1. BRAFTOVI [Suspect]
     Active Substance: ENCORAFENIB
     Indication: Malignant melanoma
     Dosage: 450 MG, UNK
     Route: 065

REACTIONS (3)
  - Facial paralysis [Unknown]
  - Off label use [Unknown]
  - Product use in unapproved indication [Unknown]
